FAERS Safety Report 14763684 (Version 2)
Quarter: 2018Q2

REPORT INFORMATION
  Report Type: Report from Study
  Country: CA (occurrence: CA)
  Receive Date: 20180416
  Receipt Date: 20180421
  Transmission Date: 20180711
  Serious: No
  Sender: FDA-Public Use
  Company Number: CA-ROCHE-2104708

PATIENT
  Age: 45 Year
  Sex: Female

DRUGS (4)
  1. DIPHENHYDRAMINE. [Concomitant]
     Active Substance: DIPHENHYDRAMINE
     Indication: PREMEDICATION
     Dosage: 50 MG PO/IV 30-60 MINS PRIOR TO EACH OCRELIZUMAB INFUSION
     Route: 065
     Dates: start: 20180406
  2. OCREVUS [Suspect]
     Active Substance: OCRELIZUMAB
     Indication: RELAPSING-REMITTING MULTIPLE SCLEROSIS
     Dosage: 300 MG AT DAY 0 AND DAY 14
     Route: 042
     Dates: start: 20180406
  3. ACETAMINOPHEN. [Concomitant]
     Active Substance: ACETAMINOPHEN
     Indication: PREMEDICATION
     Dosage: 30-60 MINS PRIOR TO EACH OCRELIZUMAB INFUSION
     Route: 048
     Dates: start: 20180406
  4. METHYLPREDNISOLONE. [Concomitant]
     Active Substance: METHYLPREDNISOLONE
     Indication: PREMEDICATION
     Dosage: 30 MIN PRIOR TO EACH OCRELIZUMAB INFUSION
     Route: 042
     Dates: start: 20180406

REACTIONS (3)
  - Hypoaesthesia [Not Recovered/Not Resolved]
  - Syncope [Recovered/Resolved]
  - Infusion related reaction [Recovered/Resolved]

NARRATIVE: CASE EVENT DATE: 20180406
